FAERS Safety Report 24302630 (Version 2)
Quarter: 2024Q3

REPORT INFORMATION
  Report Type: Spontaneous
  Country: DE (occurrence: DE)
  Receive Date: 20240910
  Receipt Date: 20240916
  Transmission Date: 20241016
  Serious: Yes (Other)
  Sender: PFIZER
  Company Number: DE-ROCHE-10000030057

PATIENT
  Age: 84 Year
  Sex: Male

DRUGS (1)
  1. RITUXIMAB [Suspect]
     Active Substance: RITUXIMAB
     Dosage: UNK

REACTIONS (8)
  - Periumbilical abscess [Unknown]
  - Follicular lymphoma [Unknown]
  - Full blood count abnormal [Unknown]
  - Lymphadenopathy [Unknown]
  - Weight decreased [Unknown]
  - Splenomegaly [Unknown]
  - Pleural effusion [Unknown]
  - Mouth ulceration [Unknown]
